FAERS Safety Report 7244634-8 (Version None)
Quarter: 2011Q1

REPORT INFORMATION
  Report Type: 
  Country: None (occurrence: None)
  Receive Date: 20110125
  Receipt Date: 20110114
  Transmission Date: 20110831
  Serious: Yes (Life-Threatening, Hospitalization)
  Sender: FDA-Public Use
  Company Number: JP-MERCK-1011USA00889

PATIENT
  Age: 84 Year
  Sex: Male

DRUGS (11)
  1. JANUVIA [Suspect]
     Indication: TYPE 2 DIABETES MELLITUS
     Route: 048
     Dates: start: 20100526, end: 20101006
  2. PERSANTIN [Concomitant]
     Route: 065
     Dates: start: 20100401
  3. JANUVIA [Suspect]
     Route: 048
     Dates: start: 20100402, end: 20100525
  4. NORVASC [Concomitant]
     Route: 065
  5. MAGMITT [Concomitant]
     Route: 065
     Dates: start: 20100401, end: 20101001
  6. BLADDERON [Concomitant]
     Route: 065
  7. METHYCOBAL [Concomitant]
     Route: 065
  8. AMARYL [Concomitant]
     Route: 065
  9. SINEMET [Concomitant]
     Route: 048
  10. LASIX [Concomitant]
     Route: 065
  11. PARIET [Concomitant]
     Route: 065

REACTIONS (2)
  - PLEURAL EFFUSION [None]
  - STAPHYLOCOCCAL BACTERAEMIA [None]
